FAERS Safety Report 5741883-2 (Version None)
Quarter: 2008Q2

REPORT INFORMATION
  Report Type: 
  Country: None (occurrence: None)
  Receive Date: 20080519
  Receipt Date: 20080507
  Transmission Date: 20081010
  Serious: Yes (Other)
  Sender: FDA-Public Use
  Company Number: DE-JNJFOC-20080501508

PATIENT
  Age: 97 Year
  Sex: Female

DRUGS (3)
  1. TAVANIC [Suspect]
     Indication: NOSOCOMIAL INFECTION
     Route: 048
  2. TAVANIC [Suspect]
     Route: 042
  3. UNACID [Suspect]
     Indication: NOSOCOMIAL INFECTION
     Route: 048

REACTIONS (4)
  - BLOOD CREATININE INCREASED [None]
  - EXTRAOCULAR MUSCLE PARESIS [None]
  - ILL-DEFINED DISORDER [None]
  - PSYCHOTIC DISORDER [None]
